FAERS Safety Report 11080238 (Version 3)
Quarter: 2015Q2

REPORT INFORMATION
  Report Type: Spontaneous
  Country: JP (occurrence: JP)
  Receive Date: 20150430
  Receipt Date: 20150522
  Transmission Date: 20150821
  Serious: Yes (Other)
  Sender: FDA-Public Use
  Company Number: JP-ELI_LILLY_AND_COMPANY-JP201503001605

PATIENT
  Age: 55 Year
  Sex: Male
  Weight: 56.1 kg

DRUGS (10)
  1. GOODMIN [Concomitant]
     Active Substance: BROTIZOLAM
     Route: 048
  2. ZYPREXA [Suspect]
     Active Substance: OLANZAPINE
     Dosage: 10 MG, QD
     Route: 048
     Dates: start: 20150105, end: 20150107
  3. LEVOTOMIN                          /00038603/ [Concomitant]
     Indication: BIPOLAR DISORDER
     Dosage: UNK
     Route: 048
     Dates: start: 20141219
  4. RISPERIDONE. [Concomitant]
     Active Substance: RISPERIDONE
     Dosage: UNK, PRN
     Route: 048
  5. LEVOTOMIN                          /00038603/ [Concomitant]
     Dosage: 100 MG, QD
     Route: 048
     Dates: start: 20141219, end: 20141223
  6. LEVOTOMIN                          /00038603/ [Concomitant]
     Dosage: 10 MG, QD
     Route: 048
  7. LEVOTOMIN                          /00038603/ [Concomitant]
     Dosage: 25 MG, QD
     Route: 048
     Dates: start: 2012
  8. LEVOTOMIN                          /00038603/ [Concomitant]
     Dosage: 125 MG, QD
     Route: 048
     Dates: start: 20141224
  9. ZYPREXA [Suspect]
     Active Substance: OLANZAPINE
     Indication: BIPOLAR DISORDER
     Dosage: 20 MG, QD
     Route: 048
     Dates: start: 20141220, end: 20150104
  10. LEVOTOMIN                          /00038603/ [Concomitant]
     Dosage: 50 MG, QD
     Route: 048
     Dates: start: 20141213, end: 20141218

REACTIONS (4)
  - Pneumonia aspiration [Recovered/Resolved]
  - Neuroleptic malignant syndrome [Recovered/Resolved]
  - Aspiration [Recovered/Resolved]
  - Chest X-ray abnormal [Unknown]

NARRATIVE: CASE EVENT DATE: 20150105
